FAERS Safety Report 4486188-5 (Version None)
Quarter: 2004Q4

REPORT INFORMATION
  Report Type: 
  Country: None (occurrence: None)
  Receive Date: 20041026
  Receipt Date: 20041021
  Transmission Date: 20050328
  Serious: Yes (Life-Threatening)
  Sender: FDA-Public Use
  Company Number: US-MERCK-0410USA03372

PATIENT
  Sex: Female

DRUGS (12)
  1. VIOXX [Suspect]
     Indication: ARTHRITIS
     Route: 048
  2. VIOXX [Suspect]
     Indication: FIBROMYALGIA
     Route: 048
  3. LANOXIN [Concomitant]
     Route: 065
  4. SYNTHROID [Concomitant]
     Route: 065
  5. CARDIZEM [Concomitant]
     Route: 065
  6. CLONIDINE [Concomitant]
     Route: 065
  7. ZYRTEC [Concomitant]
     Route: 065
  8. NEXIUM [Concomitant]
     Route: 065
  9. DARVOCET-N 100 [Concomitant]
     Route: 065
  10. VENTOLIN [Concomitant]
     Route: 065
  11. [THERAPY UNSPECIFIED] [Concomitant]
     Route: 065
  12. [THERAPY UNSPECIFIED] [Concomitant]
     Route: 065

REACTIONS (4)
  - BLOOD PRESSURE INCREASED [None]
  - COLONIC POLYP [None]
  - HAEMATOCHEZIA [None]
  - THYROID NEOPLASM [None]
